FAERS Safety Report 12485031 (Version 1)
Quarter: 2016Q2

REPORT INFORMATION
  Report Type: Spontaneous
  Country: US (occurrence: US)
  Receive Date: 20160621
  Receipt Date: 20160621
  Transmission Date: 20160815
  Serious: Yes (Hospitalization, Other)
  Sender: FDA-Public Use
  Company Number: US-GLAXOSMITHKLINE-US2016GSK087222

PATIENT
  Age: 50 Year
  Sex: Female

DRUGS (1)
  1. TANZEUM [Suspect]
     Active Substance: ALBIGLUTIDE
     Indication: TYPE 2 DIABETES MELLITUS
     Dosage: 50 MG, WE
     Route: 042
     Dates: start: 201603

REACTIONS (6)
  - Device breakage [Unknown]
  - Urinary tract infection [Not Recovered/Not Resolved]
  - Drug dose omission [Recovered/Resolved]
  - Device use error [Unknown]
  - Device leakage [Unknown]
  - Sepsis [Unknown]

NARRATIVE: CASE EVENT DATE: 201603
